FAERS Safety Report 6837307-4 (Version None)
Quarter: 2010Q3

REPORT INFORMATION
  Report Type: 
  Country: None (occurrence: None)
  Receive Date: 20100713
  Receipt Date: 20070508
  Transmission Date: 20110219
  Serious: No
  Sender: FDA-Public Use
  Company Number: US-PFIZER INC-2007038413

PATIENT
  Sex: Male
  Weight: 94.5 kg

DRUGS (8)
  1. CHANTIX [Suspect]
     Indication: SMOKING CESSATION THERAPY
     Dates: start: 20070502
  2. TOPROL-XL [Concomitant]
     Indication: CARDIAC DISORDER
  3. PRINIVIL [Concomitant]
     Indication: CARDIAC DISORDER
  4. LIPITOR [Concomitant]
     Indication: CARDIAC DISORDER
  5. LANOXIN [Concomitant]
     Indication: CARDIAC DISORDER
  6. VITAMIN C [Concomitant]
  7. ACETYLSALICYLIC ACID [Concomitant]
  8. OTHER HYPNOTICS AND SEDATIVES [Concomitant]

REACTIONS (2)
  - ABNORMAL DREAMS [None]
  - NOCTURIA [None]
